FAERS Safety Report 6893589-4 (Version None)
Quarter: 2010Q3

REPORT INFORMATION
  Report Type: 
  Country: None (occurrence: None)
  Receive Date: 20100731
  Receipt Date: 20091021
  Transmission Date: 20110219
  Serious: No
  Sender: FDA-Public Use
  Company Number: US-PFIZER INC-2009251175

PATIENT
  Sex: Female

DRUGS (3)
  1. NEURONTIN [Suspect]
     Dosage: UNK
  2. LYRICA [Suspect]
  3. NORTRIPTYLINE [Suspect]
     Dosage: UNK

REACTIONS (1)
  - PARAESTHESIA [None]
